FAERS Safety Report 5878942-X (Version None)
Quarter: 2008Q3

REPORT INFORMATION
  Report Type: 
  Country: None (occurrence: None)
  Receive Date: 20080912
  Receipt Date: 20080828
  Transmission Date: 20090109
  Serious: Yes (Death)
  Sender: FDA-Public Use
  Company Number: MX-ELI_LILLY_AND_COMPANY-MX200809000040

PATIENT

DRUGS (1)
  1. CIALIS [Suspect]
     Dosage: UNK, UNKNOWN
     Route: 050

REACTIONS (3)
  - DEATH [None]
  - DIAPHRAGMATIC HERNIA [None]
  - PATERNAL DRUGS AFFECTING FOETUS [None]
